FAERS Safety Report 7279164-0 (Version None)
Quarter: 2011Q1

REPORT INFORMATION
  Report Type: 
  Country: None (occurrence: None)
  Receive Date: 20110207
  Receipt Date: 20110207
  Transmission Date: 20110831
  Serious: Yes (Hospitalization, Disabling)
  Sender: FDA-Public Use
  Company Number: FR-MYLANLABS-2011S1001616

PATIENT
  Age: 56 Year
  Sex: Female
  Weight: 56 kg

DRUGS (4)
  1. AZOPT [Concomitant]
     Indication: PRODUCT USED FOR UNKNOWN INDICATION
  2. TAMOXIFEN CITRATE [Suspect]
     Indication: BREAST CANCER
     Route: 048
     Dates: start: 20021201, end: 20041201
  3. MYDRIATICUM [Concomitant]
     Indication: PRODUCT USED FOR UNKNOWN INDICATION
  4. TOBRADEX [Concomitant]
     Indication: PRODUCT USED FOR UNKNOWN INDICATION

REACTIONS (1)
  - RETINAL DETACHMENT [None]
